FAERS Safety Report 10222721 (Version 2)
Quarter: 2014Q3

REPORT INFORMATION
  Report Type: Spontaneous
  Country: PL (occurrence: PL)
  Receive Date: 20140606
  Receipt Date: 20140704
  Transmission Date: 20150326
  Serious: Yes (Hospitalization, Other)
  Sender: FDA-Public Use
  Company Number: PL-009507513-1406POL001889

PATIENT
  Age: 3 Year
  Sex: Male

DRUGS (2)
  1. MONTELUKAST SODIUM. [Suspect]
     Active Substance: MONTELUKAST SODIUM
     Indication: ASTHMA
     Dosage: 5 MG, QD
     Route: 048
     Dates: start: 200910, end: 20100310
  2. MK-0000 [Suspect]
     Active Substance: INVESTIGATIONAL PRODUCT

REACTIONS (1)
  - Drug-induced liver injury [Recovered/Resolved]
